FAERS Safety Report 5296652-7 (Version None)
Quarter: 2007Q2

REPORT INFORMATION
  Report Type: 
  Country: None (occurrence: None)
  Receive Date: 20070413
  Receipt Date: 20070406
  Transmission Date: 20071010
  Serious: Yes (Other)
  Sender: FDA-Public Use
  Company Number: US-PFIZER INC-2007007670

PATIENT
  Age: 46 Year
  Sex: Female
  Weight: 105.7 kg

DRUGS (6)
  1. CHANTIX [Suspect]
     Indication: SMOKING CESSATION THERAPY
     Dates: start: 20060921, end: 20061210
  2. ALCOHOL [Suspect]
  3. CRESTOR [Concomitant]
  4. TRICOR [Concomitant]
  5. ACETYLSALICYLIC ACID SRT [Concomitant]
  6. MESALAZINE [Concomitant]

REACTIONS (1)
  - CONVULSION [None]
